FAERS Safety Report 5965048-4 (Version None)
Quarter: 2008Q4

REPORT INFORMATION
  Report Type: 
  Country: None (occurrence: None)
  Receive Date: 20081125
  Receipt Date: 20081114
  Transmission Date: 20090506
  Serious: Yes (Other)
  Sender: FDA-Public Use
  Company Number: PHHY2008CH28397

PATIENT
  Sex: Male

DRUGS (10)
  1. GLEEVEC [Suspect]
     Indication: PULMONARY ARTERIAL HYPERTENSION
     Dosage: 200 MG/DAY
     Dates: start: 20080109
  2. GLEEVEC [Suspect]
     Dosage: 400 MG/DAY
  3. GLEEVEC [Suspect]
     Dosage: 200 MG/DAY
     Dates: start: 20080206, end: 20080211
  4. GLEEVEC [Suspect]
     Dosage: 2X/WEEK
     Dates: start: 20080304
  5. GLEEVEC [Suspect]
     Dosage: 500 MG/WEEK
     Dates: end: 20080421
  6. REMODULIN [Concomitant]
     Dosage: UNK
     Route: 058
     Dates: start: 20070802
  7. TRACLEER [Concomitant]
     Dosage: 250 MG/DAY
     Dates: start: 20060907
  8. MARCUMAR [Concomitant]
     Dosage: 3 MG/DAY
     Dates: start: 20060907
  9. VIAGRA [Concomitant]
     Dosage: 150 MG/DAY
     Dates: start: 20060907
  10. TOREM [Concomitant]
     Dosage: 20 MG/DAY

REACTIONS (17)
  - ABASIA [None]
  - ANOREXIA [None]
  - ARTHRALGIA [None]
  - BONE PAIN [None]
  - COUGH [None]
  - DEPRESSED MOOD [None]
  - DYSPNOEA [None]
  - EPISTAXIS [None]
  - FATIGUE [None]
  - GENERAL PHYSICAL HEALTH DETERIORATION [None]
  - HYPERHIDROSIS [None]
  - INSOMNIA [None]
  - MYALGIA [None]
  - NAUSEA [None]
  - OEDEMA PERIPHERAL [None]
  - PERIORBITAL OEDEMA [None]
  - WEIGHT INCREASED [None]
